FAERS Safety Report 8984320 (Version 1)
Quarter: 2012Q4

REPORT INFORMATION
  Report Type: Spontaneous
  Country: US (occurrence: None)
  Receive Date: 20121214
  Receipt Date: 20121214
  Transmission Date: 20130627
  Serious: Yes (Hospitalization, Other)
  Sender: FDA-Public Use
  Company Number: DAV-AE-AMO-12-08

PATIENT
  Age: 49 Year
  Sex: Male

DRUGS (3)
  1. AMOXICILLIN [Suspect]
     Indication: HELICOBACTER PYLORI GASTRITIS
  2. CLARITHROMYCIN [Concomitant]
  3. LANSOPRAZOLE [Concomitant]

REACTIONS (6)
  - Abnormal behaviour [None]
  - Unresponsive to stimuli [None]
  - Staring [None]
  - Feeling abnormal [None]
  - Dyskinesia [None]
  - Disorientation [None]
